FAERS Safety Report 10087053 (Version 1)
Quarter: 2014Q2

REPORT INFORMATION
  Report Type: Spontaneous
  Country: IT (occurrence: IT)
  Receive Date: 20140418
  Receipt Date: 20140418
  Transmission Date: 20141212
  Serious: Yes (Other)
  Sender: FDA-Public Use
  Company Number: IT-PFIZER INC-2014106026

PATIENT
  Age: 41 Year
  Sex: Female

DRUGS (1)
  1. XANAX [Suspect]
     Dosage: 10 ML, SINGLE DOSE
     Route: 048
     Dates: start: 20140305, end: 20140305

REACTIONS (2)
  - Intentional self-injury [Recovering/Resolving]
  - Somnolence [Recovering/Resolving]
